FAERS Safety Report 15852707 (Version 3)
Quarter: 2019Q1

REPORT INFORMATION
  Report Type: Report from Study
  Country: JP (occurrence: JP)
  Receive Date: 20190122
  Receipt Date: 20190328
  Transmission Date: 20190417
  Serious: Yes (Hospitalization, Disabling, Other)
  Sender: FDA-Public Use
  Company Number: PHJP2019JP000858

PATIENT
  Age: 39 Year
  Sex: Male

DRUGS (5)
  1. RANMARK [Concomitant]
     Active Substance: DENOSUMAB
     Indication: NON-SMALL CELL LUNG CANCER STAGE IV
     Dosage: 120 MG, UNK
     Route: 065
  2. METHYCOBAL [Concomitant]
     Active Substance: METHYLCOBALAMIN
     Indication: NON-SMALL CELL LUNG CANCER STAGE IV
     Dosage: 1000 UG, UNK
     Route: 065
  3. ZYKADIA [Suspect]
     Active Substance: CERITINIB
     Dosage: 750 MG, QD
     Route: 048
     Dates: start: 20170829, end: 20171127
  4. ZYKADIA [Suspect]
     Active Substance: CERITINIB
     Dosage: 450 MG, UNK
     Route: 048
     Dates: start: 20180412, end: 20180505
  5. ZYKADIA [Suspect]
     Active Substance: CERITINIB
     Indication: NON-SMALL CELL LUNG CANCER STAGE IV
     Dosage: 600 MG, QD
     Route: 048
     Dates: start: 20170822, end: 20170828

REACTIONS (12)
  - Renal infarct [Unknown]
  - Malignant neoplasm progression [Unknown]
  - Cough [Recovered/Resolved]
  - Cerebral infarction [Recovered/Resolved with Sequelae]
  - Movement disorder [Unknown]
  - Splenic infarction [Unknown]
  - Language disorder [Unknown]
  - Lymphangiosis carcinomatosa [Unknown]
  - Non-small cell lung cancer stage IV [Unknown]
  - Trousseau^s syndrome [Recovering/Resolving]
  - Liver disorder [Recovered/Resolved]
  - Hypoaesthesia [Unknown]

NARRATIVE: CASE EVENT DATE: 20171010
